FAERS Safety Report 5692581-5 (Version None)
Quarter: 2008Q2

REPORT INFORMATION
  Report Type: 
  Country: None (occurrence: None)
  Receive Date: 20080401
  Receipt Date: 20080324
  Transmission Date: 20081010
  Serious: Yes (Other)
  Sender: FDA-Public Use
  Company Number: 2008SP004984

PATIENT
  Age: 44 Year
  Sex: Female
  Weight: 52.3 kg

DRUGS (1)
  1. TEMODAR [Suspect]
     Indication: GLIOBLASTOMA MULTIFORME
     Dosage: 150 MG/M2;QD;
     Dates: start: 20070709, end: 20080205

REACTIONS (11)
  - AMENORRHOEA [None]
  - ANOREXIA [None]
  - ARTHRALGIA [None]
  - HOT FLUSH [None]
  - HYPERACUSIS [None]
  - MEMORY IMPAIRMENT [None]
  - MYALGIA [None]
  - NEUTROPHIL COUNT DECREASED [None]
  - NIGHT SWEATS [None]
  - PAIN IN EXTREMITY [None]
  - WHITE BLOOD CELL COUNT DECREASED [None]
